FAERS Safety Report 10778778 (Version 2)
Quarter: 2015Q1

REPORT INFORMATION
  Report Type: Spontaneous
  Country: JP (occurrence: JP)
  Receive Date: 20150210
  Receipt Date: 20150223
  Transmission Date: 20150721
  Serious: Yes (Hospitalization)
  Sender: FDA-Public Use
  Company Number: JP-PFIZER INC-2015013482

PATIENT
  Age: 62 Year
  Sex: Female
  Weight: 43.2 kg

DRUGS (1)
  1. INLYTA [Suspect]
     Active Substance: AXITINIB
     Indication: METASTATIC RENAL CELL CARCINOMA
     Dosage: 10 MG, 2X/DAY
     Route: 048
     Dates: start: 20141104

REACTIONS (2)
  - Product use issue [Unknown]
  - Atypical mycobacterial pneumonia [Not Recovered/Not Resolved]

NARRATIVE: CASE EVENT DATE: 20141104
